FAERS Safety Report 10279331 (Version 1)
Quarter: 2014Q3

REPORT INFORMATION
  Report Type: Spontaneous
  Country: US (occurrence: US)
  Receive Date: 20140707
  Receipt Date: 20140707
  Transmission Date: 20150326
  Serious: No
  Sender: FDA-Public Use
  Company Number: US-009507513-1406USA011615

PATIENT
  Age: 62 Year
  Sex: Male

DRUGS (4)
  1. COUGH, COLD, AND FLU THERAPIES (UNSPECIFIED) [Concomitant]
     Dosage: UNK
  2. NASONEX [Concomitant]
     Active Substance: MOMETASONE FUROATE
     Dosage: UNK
  3. DULERA [Suspect]
     Active Substance: FORMOTEROL FUMARATE DIHYDRATE\MOMETASONE FUROATE
     Indication: ASTHMA
     Dosage: 200/5 MCRG/2 PUFFS IN AM 2 PUFFS IN PM
     Route: 055
     Dates: start: 2014
  4. SINGULAIR [Concomitant]
     Active Substance: MONTELUKAST SODIUM
     Dosage: UNK

REACTIONS (4)
  - Cough [Unknown]
  - Oral candidiasis [Recovering/Resolving]
  - Dysphonia [Unknown]
  - Wheezing [Unknown]

NARRATIVE: CASE EVENT DATE: 201405
